FAERS Safety Report 6103378-6 (Version None)
Quarter: 2009Q1

REPORT INFORMATION
  Report Type: 
  Country: None (occurrence: None)
  Receive Date: 20090305
  Receipt Date: 20090122
  Transmission Date: 20090719
  Serious: No
  Sender: FDA-Public Use
  Company Number: US-BAYER-200912029NA

PATIENT
  Age: 57 Year
  Sex: Female
  Weight: 54 kg

DRUGS (1)
  1. MAGNEVIST [Suspect]
     Indication: NUCLEAR MAGNETIC RESONANCE IMAGING THORACIC
     Dosage: TOTAL DAILY DOSE: 18 ML
     Route: 042
     Dates: start: 20090122, end: 20090122

REACTIONS (3)
  - LACRIMATION INCREASED [None]
  - PARANASAL SINUS HYPERSECRETION [None]
  - PRURITUS [None]
